FAERS Safety Report 7921386-7 (Version None)
Quarter: 2011Q4

REPORT INFORMATION
  Report Type: 
  Country: None (occurrence: None)
  Receive Date: 20111117
  Receipt Date: 20111116
  Transmission Date: 20120403
  Serious: Yes (Death, Hospitalization)
  Sender: FDA-Public Use
  Company Number: IT-ABBOTT-11P-083-0860616-00

PATIENT
  Sex: Male
  Weight: 70 kg

DRUGS (1)
  1. HUMIRA [Suspect]
     Indication: RHEUMATOID ARTHRITIS
     Dosage: CYCLIC
     Route: 058
     Dates: start: 20100209, end: 20110712

REACTIONS (5)
  - METASTASES TO BONE [None]
  - METASTASES TO LYMPH NODES [None]
  - DEATH [None]
  - LUNG SQUAMOUS CELL CARCINOMA STAGE IV [None]
  - METASTASES TO LUNG [None]
